FAERS Safety Report 17289155 (Version 1)
Quarter: 2020Q1

REPORT INFORMATION
  Report Type: Spontaneous
  Country: US (occurrence: US)
  Receive Date: 20200120
  Receipt Date: 20200120
  Transmission Date: 20200409
  Serious: Yes (Hospitalization)
  Sender: FDA-Public Use
  Company Number: US-MYLANLABS-2020M1005438

PATIENT
  Age: 79 Year
  Sex: Male

DRUGS (7)
  1. IPILIMUMAB W/NIVOLUMAB [Concomitant]
     Indication: MALIGNANT MELANOMA
     Dosage: UNK
     Route: 065
  2. IPILIMUMAB W/NIVOLUMAB [Concomitant]
     Indication: CHOROID MELANOMA
  3. IPILIMUMAB W/NIVOLUMAB [Concomitant]
     Indication: METASTASES TO LIVER
  4. MORPHINE [Concomitant]
     Active Substance: MORPHINE
     Indication: APPETITE DISORDER
     Dosage: UNK
     Route: 065
  5. MORPHINE [Concomitant]
     Active Substance: MORPHINE
     Indication: PAIN
  6. MIRTAZAPINE. [Suspect]
     Active Substance: MIRTAZAPINE
     Indication: APPETITE DISORDER
     Dosage: UNK
     Route: 065
  7. MIRTAZAPINE. [Suspect]
     Active Substance: MIRTAZAPINE
     Indication: PAIN

REACTIONS (1)
  - Psychotic disorder [Recovered/Resolved]
